FAERS Safety Report 11685477 (Version 1)
Quarter: 2015Q4

REPORT INFORMATION
  Report Type: Spontaneous
  Country: US (occurrence: None)
  Receive Date: 20151029
  Receipt Date: 20151029
  Transmission Date: 20160304
  Serious: Yes (Disabling, Other)
  Sender: FDA-Public Use
  Company Number: None

PATIENT
  Age: 39 Year
  Sex: Female

DRUGS (2)
  1. ONE A DAY MULTI FOR WOMEN [Concomitant]
     Active Substance: MINERALS\VITAMINS
  2. LOMEDIA 24 FE [Suspect]
     Active Substance: ETHINYL ESTRADIOL\NORETHINDRONE ACETATE
     Route: 048

REACTIONS (9)
  - Vomiting [None]
  - Dizziness [None]
  - Disturbance in attention [None]
  - Coordination abnormal [None]
  - Vertigo [None]
  - Balance disorder [None]
  - Fatigue [None]
  - Vision blurred [None]
  - Contact lens intolerance [None]
